FAERS Safety Report 4286665-6 (Version None)
Quarter: 2004Q1

REPORT INFORMATION
  Report Type: 
  Country: None (occurrence: None)
  Receive Date: 20040204
  Receipt Date: 20040120
  Transmission Date: 20041129
  Serious: Yes (Hospitalization)
  Sender: FDA-Public Use
  Company Number: S04-FRA-00362-01

PATIENT
  Age: 15 Year
  Sex: Female

DRUGS (1)
  1. SEROPRAM (CITALOPRAM HYDROBROMIDE) [Suspect]
     Dosage: 120 MG ONCE PO
     Route: 048
     Dates: start: 20040119, end: 20040119

REACTIONS (3)
  - MALAISE [None]
  - OVERDOSE [None]
  - SUICIDE ATTEMPT [None]
